FAERS Safety Report 7353998-6 (Version None)
Quarter: 2011Q1

REPORT INFORMATION
  Report Type: 
  Country: None (occurrence: None)
  Receive Date: 20110315
  Receipt Date: 20110304
  Transmission Date: 20110831
  Serious: Yes (Other)
  Sender: FDA-Public Use
  Company Number: PHHY2011CA18345

PATIENT
  Sex: Female

DRUGS (3)
  1. METOPROLOL [Concomitant]
     Dosage: 12.5 MG, QD
     Route: 048
  2. THYROXINE [Concomitant]
     Dosage: 150 MG, QD
     Route: 048
  3. EXJADE [Suspect]
     Indication: APLASTIC ANAEMIA
     Dosage: 1625 MG, QD
     Route: 048
     Dates: start: 20091001

REACTIONS (1)
  - VISUAL IMPAIRMENT [None]
